FAERS Safety Report 5343950-4 (Version None)
Quarter: 2007Q2

REPORT INFORMATION
  Report Type: 
  Country: None (occurrence: None)
  Receive Date: 20070604
  Receipt Date: 20070525
  Transmission Date: 20071010
  Serious: Yes (Death, Hospitalization)
  Sender: FDA-Public Use
  Company Number: CH-GENENTECH-241100

PATIENT
  Sex: Male

DRUGS (5)
  1. RITUXIMAB [Suspect]
     Indication: NON-HODGKIN'S LYMPHOMA
     Dosage: 730 MG, UNK
     Route: 042
     Dates: start: 20070419
  2. CISPLATIN [Suspect]
     Indication: NON-HODGKIN'S LYMPHOMA
     Dosage: 195 MG, UNK
     Route: 042
     Dates: start: 20070422
  3. ARA-C [Suspect]
     Indication: NON-HODGKIN'S LYMPHOMA
     Dosage: 7760 MG, UNK
     Route: 042
     Dates: start: 20070424
  4. DEXAMETHASONE TAB [Suspect]
     Indication: NON-HODGKIN'S LYMPHOMA
     Dosage: 40 MG, UNK
     Route: 048
     Dates: start: 20070422
  5. NEUPOGEN [Suspect]
     Indication: NON-HODGKIN'S LYMPHOMA
     Dosage: 48 UNK, UNK
     Route: 058
     Dates: start: 20070427

REACTIONS (1)
  - FEBRILE NEUTROPENIA [None]
